FAERS Safety Report 25907150 (Version 1)
Quarter: 2025Q4

REPORT INFORMATION
  Report Type: Spontaneous
  Country: BH (occurrence: BH)
  Receive Date: 20251010
  Receipt Date: 20251010
  Transmission Date: 20260117
  Serious: Yes (Hospitalization)
  Sender: Kenvue
  Company Number: BH-KENVUE-20251000112

PATIENT

DRUGS (2)
  1. DOMPERIDONE [Suspect]
     Active Substance: DOMPERIDONE
     Indication: Accidental exposure to product by child
     Route: 048
  2. ACETAMINOPHEN [Suspect]
     Active Substance: ACETAMINOPHEN
     Indication: Accidental exposure to product by child
     Route: 048

REACTIONS (1)
  - Accidental exposure to product by child [Unknown]
